FAERS Safety Report 7706456-0 (Version None)
Quarter: 2011Q3

REPORT INFORMATION
  Report Type: 
  Country: None (occurrence: None)
  Receive Date: 20110824
  Receipt Date: 20110817
  Transmission Date: 20111222
  Serious: Yes (Hospitalization)
  Sender: FDA-Public Use
  Company Number: JP-B.I. PHARMACEUTICALS,INC./RIDGEFIELD-2011-BP-20179NB

PATIENT
  Age: 80 Year
  Sex: Male

DRUGS (5)
  1. TRICHLORMETHIAZIDE [Concomitant]
     Indication: HYPERTENSION
     Dosage: 0.5 MG
     Route: 048
  2. NIZATIDINE [Concomitant]
     Indication: GASTRITIS
     Dosage: 75 MG
     Route: 048
  3. AMLODIPINE [Concomitant]
     Indication: HYPERTENSION
     Dosage: 5 MG
     Route: 048
  4. AVAPRO [Concomitant]
     Indication: HYPERTENSION
     Dosage: 100 MG
     Route: 048
  5. PRADAXA [Suspect]
     Indication: ATRIAL FIBRILLATION
     Dosage: 220 MG
     Route: 048
     Dates: start: 20110419, end: 20110808

REACTIONS (3)
  - PLEURAL EFFUSION [None]
  - HEPATIC FUNCTION ABNORMAL [None]
  - INCONTINENCE [None]
